FAERS Safety Report 25711296 (Version 1)
Quarter: 2025Q3

REPORT INFORMATION
  Report Type: Spontaneous
  Country: SG (occurrence: SG)
  Receive Date: 20250821
  Receipt Date: 20250821
  Transmission Date: 20251021
  Serious: Yes (Other)
  Sender: NOVARTIS
  Company Number: SG-002147023-NVSC2025SG128932

PATIENT
  Sex: Male

DRUGS (1)
  1. CAPMATINIB [Suspect]
     Active Substance: CAPMATINIB
     Indication: Lung adenocarcinoma
     Dosage: 400 MG, BID (AFTER 6 WEEKS, RESUMED AT 200 MG OM,  AND ESCALATED  TO 200 MG BID, THEN 300 MG BID)
     Route: 065

REACTIONS (4)
  - Aspartate aminotransferase increased [Unknown]
  - Alanine aminotransferase increased [Unknown]
  - Oedema peripheral [Unknown]
  - Off label use [Unknown]
